FAERS Safety Report 10915133 (Version 3)
Quarter: 2016Q2

REPORT INFORMATION
  Report Type: Spontaneous
  Country: US (occurrence: US)
  Receive Date: 20150316
  Receipt Date: 20160512
  Transmission Date: 20160815
  Serious: Yes (Other)
  Sender: FDA-Public Use
  Company Number: US-UCBSA-2015007098

PATIENT
  Age: 39 Year
  Sex: Female

DRUGS (1)
  1. CIMZIA [Suspect]
     Active Substance: CERTOLIZUMAB PEGOL
     Indication: RHEUMATOID ARTHRITIS
     Dosage: 400 MG, MONTHLY (QM)
     Route: 058
     Dates: start: 20140521

REACTIONS (6)
  - Cough [Unknown]
  - Furuncle [Unknown]
  - Injection site bruising [Unknown]
  - Injection site swelling [Unknown]
  - Urinary tract infection [Unknown]
  - Genital abscess [Unknown]

NARRATIVE: CASE EVENT DATE: 2014
